FAERS Safety Report 7966873-0 (Version None)
Quarter: 2011Q4

REPORT INFORMATION
  Report Type: 
  Country: None (occurrence: None)
  Receive Date: 20111209
  Receipt Date: 20111206
  Transmission Date: 20120403
  Serious: No
  Sender: FDA-Public Use
  Company Number: US-PFIZER INC-2011246970

PATIENT
  Sex: Female

DRUGS (23)
  1. REVATIO [Suspect]
     Indication: PULMONARY HYPERTENSION
     Dosage: 20 MG, 3X/DAY
     Route: 048
  2. ASMANEX TWISTHALER [Concomitant]
     Dosage: 220 UG, 2X/DAY, 2 INH
     Route: 048
  3. POTASSIUM CHLORIDE [Concomitant]
     Dosage: 10 MEQ, 2X/DAY
     Route: 048
  4. OMEPRAZOLE [Concomitant]
     Dosage: 20 MG, 1X/DAY
     Route: 048
  5. CYCLOBENZAPRINE [Concomitant]
     Dosage: 10 MG, 3X/DAY, PRN
     Route: 048
  6. CLONIDINE [Concomitant]
     Dosage: 0.1 MG, 3X/DAY, 2 TABS
     Route: 048
  7. NPH INSULIN [Concomitant]
     Dosage: UNK, 14 UNITS SQ QHS (EVERY NIGHT AT BEDTIME)
  8. HYDRALAZINE [Concomitant]
     Dosage: 25 MG, 3X/DAY
     Route: 048
  9. FAMOTIDINE [Concomitant]
     Dosage: 20 MG, 2X/DAY
     Route: 048
  10. ANASTROZOLE [Concomitant]
     Dosage: 1 MG, 1X/DAY
     Route: 048
  11. ALBUTEROL [Concomitant]
     Dosage: UNK, 2 PUFFS Q4-6 HRS PRN
     Route: 048
  12. DILTIAZEM [Concomitant]
     Dosage: 120 MG, 1X/DAY
     Route: 048
  13. DOCUSATE SODIUM [Concomitant]
     Dosage: UNK, 100 UNIT, DAILY PRN
     Route: 048
  14. MELOXICAM [Concomitant]
     Dosage: 7.5 MG, 1X/DAY
     Route: 048
  15. GLIPIZIDE [Concomitant]
     Dosage: 10 MG, 2X/DAY
     Route: 048
  16. ASPIRIN [Concomitant]
     Dosage: 81 MG, 1X/DAY
  17. SPIRONOLACTONE [Concomitant]
     Dosage: 25 MG, 1X/DAY
     Route: 048
  18. PRAZOSIN [Concomitant]
     Dosage: 2 MG, 3X/DAY
     Route: 048
  19. ATROVENT [Concomitant]
     Dosage: UNK, 2 SPRAYS BID IN EACH NOSTRIL
  20. FERROUS SULFATE [Concomitant]
     Dosage: 325 MG, 2X/DAY
     Route: 048
  21. FLONASE [Concomitant]
     Dosage: UNK, 1 SPRAY IN EACH NOSTRIL, BID
  22. FUROSEMIDE [Concomitant]
     Dosage: 20 MG, 3X/DAY
  23. SPIRIVA [Concomitant]
     Dosage: UNK, 1 INH DAILY
     Route: 048

REACTIONS (2)
  - SWELLING FACE [None]
  - ERYTHEMA [None]
